FAERS Safety Report 25713317 (Version 1)
Quarter: 2025Q3

REPORT INFORMATION
  Report Type: Spontaneous
  Country: EU (occurrence: EU)
  Receive Date: 20250822
  Receipt Date: 20250822
  Transmission Date: 20251021
  Serious: Yes (Other)
  Sender: ROCHE
  Company Number: None

PATIENT
  Age: 89 Year
  Sex: Male

DRUGS (13)
  1. ERIVEDGE [Suspect]
     Active Substance: VISMODEGIB
     Indication: Basal cell carcinoma
     Route: 048
  2. BEPANTHEN KR?M [Concomitant]
  3. B?RES CSEPP EXTRA [Concomitant]
  4. AMLODIPINE BESYLATE\PERINDOPRIL ARGININE [Concomitant]
     Active Substance: AMLODIPINE BESYLATE\PERINDOPRIL ARGININE
  5. Dimotec 1000 MG [Concomitant]
  6. MAGNE B6 [Concomitant]
     Active Substance: MAGNESIUM\PYRIDOXINE
  7. Memoril 1200 MG [Concomitant]
  8. NEOGRANORMON [Concomitant]
  9. Prosolin 0,4 MG [Concomitant]
  10. HERBALS [Concomitant]
     Active Substance: HERBALS
  11. Tobrex 3 mg/g szemken?cs [Concomitant]
  12. Vigamox 5 mg/ml oldatos szemcsepp [Concomitant]
  13. ZOCOR FORTE 40 MG [Concomitant]

REACTIONS (4)
  - Muscle spasms [Recovered/Resolved]
  - Diarrhoea [Recovered/Resolved]
  - Deafness [Not Recovered/Not Resolved]
  - Ageusia [Unknown]
